FAERS Safety Report 24464738 (Version 1)
Quarter: 2024Q4

REPORT INFORMATION
  Report Type: Report from Study
  Country: US (occurrence: US)
  Receive Date: 20241018
  Receipt Date: 20241018
  Transmission Date: 20250115
  Serious: No
  Sender: ROCHE
  Company Number: US-ROCHE-3498446

PATIENT
  Age: 28 Year
  Sex: Female
  Weight: 99.79 kg

DRUGS (1)
  1. XOLAIR [Suspect]
     Active Substance: OMALIZUMAB
     Indication: Urticaria chronic
     Route: 065
     Dates: start: 202207, end: 2022

REACTIONS (1)
  - Urticaria [Not Recovered/Not Resolved]
